FAERS Safety Report 4804143-X (Version None)
Quarter: 2005Q4

REPORT INFORMATION
  Report Type: 
  Country: None (occurrence: None)
  Receive Date: 20051014
  Receipt Date: 20050929
  Transmission Date: 20060501
  Serious: Yes (Hospitalization)
  Sender: FDA-Public Use
  Company Number: US015404

PATIENT
  Age: 41 Year
  Sex: Female

DRUGS (2)
  1. GABITRIL [Suspect]
     Dates: start: 20050101, end: 20050422
  2. GABITRIL [Suspect]
     Dosage: 2 MG TID ORAL
     Route: 048
     Dates: start: 20050422, end: 20050502

REACTIONS (6)
  - ABNORMAL BEHAVIOUR [None]
  - AMNESIA [None]
  - COGNITIVE DISORDER [None]
  - DISORIENTATION [None]
  - ENCEPHALOPATHY [None]
  - UNRESPONSIVE TO VERBAL STIMULI [None]
